FAERS Safety Report 8264207-8 (Version None)
Quarter: 2012Q2

REPORT INFORMATION
  Report Type: 
  Country: None (occurrence: None)
  Receive Date: 20120406
  Receipt Date: 20120326
  Transmission Date: 20120825
  Serious: No
  Sender: FDA-Public Use
  Company Number: US-JNJFOC-20120313116

PATIENT
  Sex: Male
  Weight: 99.79 kg

DRUGS (12)
  1. FENTANYL-100 [Suspect]
     Indication: BACK PAIN
     Route: 062
     Dates: start: 20120324, end: 20120325
  2. FENTANYL-100 [Suspect]
     Indication: NECK PAIN
     Route: 062
     Dates: start: 20120324, end: 20120325
  3. ONDANSETRON [Concomitant]
     Indication: NAUSEA
     Route: 048
  4. VITAMINS NOS [Concomitant]
     Indication: VITAMIN SUPPLEMENTATION
     Route: 048
  5. AMBIEN [Concomitant]
     Indication: SLEEP DISORDER
     Route: 048
  6. MAGNESIUM [Concomitant]
     Indication: MEDICAL DIET
     Route: 048
  7. FENTANYL-100 [Suspect]
     Indication: NAUSEA
     Route: 062
     Dates: start: 20120324, end: 20120325
  8. FLOMAX [Concomitant]
     Indication: PROSTATOMEGALY
     Route: 048
  9. CARISOPRODOL [Concomitant]
     Indication: MUSCLE RELAXANT THERAPY
     Dosage: AS NEEDED
     Route: 048
  10. NAPROXEN (ALEVE) [Concomitant]
     Dosage: AS NEEDED
     Route: 048
  11. FENTANYL-100 [Suspect]
     Indication: HEADACHE
     Route: 062
     Dates: start: 20120324, end: 20120325
  12. FISH OIL [Concomitant]
     Route: 048

REACTIONS (4)
  - NAUSEA [None]
  - DRUG INEFFECTIVE [None]
  - INAPPROPRIATE SCHEDULE OF DRUG ADMINISTRATION [None]
  - PRODUCT QUALITY ISSUE [None]
